FAERS Safety Report 10053482 (Version 1)
Quarter: 2014Q2

REPORT INFORMATION
  Report Type: Spontaneous
  Country: US (occurrence: US)
  Receive Date: 20140402
  Receipt Date: 20140402
  Transmission Date: 20141212
  Serious: Yes (Other)
  Sender: FDA-Public Use
  Company Number: PHEH2014US006322

PATIENT
  Age: 14 Year
  Sex: Female

DRUGS (1)
  1. FANAPT [Suspect]
     Dosage: 2 MG, BID
     Route: 048
     Dates: start: 20140321, end: 20140324

REACTIONS (1)
  - Loss of consciousness [Recovered/Resolved]
